FAERS Safety Report 8440551-6 (Version None)
Quarter: 2012Q2

REPORT INFORMATION
  Report Type: 
  Country: None (occurrence: None)
  Receive Date: 20120615
  Receipt Date: 20120607
  Transmission Date: 20120825
  Serious: Yes (Hospitalization)
  Sender: FDA-Public Use
  Company Number: AU-BRISTOL-MYERS SQUIBB COMPANY-16357527

PATIENT
  Age: 57 Year
  Sex: Female
  Weight: 65 kg

DRUGS (8)
  1. NEXIUM [Concomitant]
     Route: 048
  2. LIPITOR [Concomitant]
     Route: 048
  3. CALCIUM [Concomitant]
     Route: 048
  4. CELEBREX [Concomitant]
     Route: 048
  5. LEUCOVORIN CALCIUM [Concomitant]
     Route: 048
  6. PREDNISOLONE [Concomitant]
     Route: 048
  7. ORENCIA [Suspect]
     Indication: RHEUMATOID ARTHRITIS
     Dosage: ALSO 500MG
     Route: 042
  8. METHOTREXATE [Concomitant]
     Route: 048

REACTIONS (4)
  - HEADACHE [None]
  - NAUSEA [None]
  - NECK PAIN [None]
  - VOMITING [None]
